FAERS Safety Report 14507622 (Version 6)
Quarter: 2019Q4

REPORT INFORMATION
  Report Type: Spontaneous
  Country: US (occurrence: US)
  Receive Date: 20180208
  Receipt Date: 20191127
  Transmission Date: 20200122
  Serious: Yes (Hospitalization)
  Sender: FDA-Public Use
  Company Number: US-ACTELION-A-NJ2018-167104

PATIENT
  Age: 52 Year
  Sex: Female

DRUGS (2)
  1. OPSUMIT [Suspect]
     Active Substance: MACITENTAN
     Indication: PULMONARY HYPERTENSION
     Dosage: 10 MG, QD
     Route: 048
     Dates: start: 20170228
  2. FUROSEMIDE. [Concomitant]
     Active Substance: FUROSEMIDE

REACTIONS (8)
  - Oedema [Recovered/Resolved]
  - Feeling abnormal [Unknown]
  - Irritability [Unknown]
  - Product dose omission [Unknown]
  - Blood pressure increased [Unknown]
  - Condition aggravated [Unknown]
  - Dyspnoea [Unknown]
  - Stress [Unknown]

NARRATIVE: CASE EVENT DATE: 20180907
